FAERS Safety Report 8529402-9 (Version None)
Quarter: 2012Q2

REPORT INFORMATION
  Report Type: 
  Country: None (occurrence: None)
  Receive Date: 20120409
  Receipt Date: 20111115
  Transmission Date: 20120825
  Serious: Yes (Death)
  Sender: FDA-Public Use
  Company Number: 2009-067

PATIENT
  Age: 83 Year
  Sex: Female
  Weight: 97.5 kg

DRUGS (7)
  1. LASIX [Concomitant]
  2. METFFORMIN HYDROCHLORIDE [Concomitant]
  3. LORAZEPAM [Concomitant]
  4. PROVIGIL [Concomitant]
  5. INSULIN (INSULIN) [Concomitant]
  6. FAZACLO ODT [Suspect]
     Indication: DELUSION
     Dosage: 87.5 MG, QD HS, ORAL
     Route: 048
     Dates: start: 20070503, end: 20090325
  7. FAZACLO ODT [Suspect]
     Indication: DEMENTIA
     Dosage: 87.5 MG, QD HS, ORAL
     Route: 048
     Dates: start: 20070503, end: 20090325

REACTIONS (1)
  - CARDIAC FAILURE CONGESTIVE [None]
